FAERS Safety Report 14036553 (Version 1)
Quarter: 2017Q4

REPORT INFORMATION
  Report Type: Spontaneous
  Country: US (occurrence: US)
  Receive Date: 20171003
  Receipt Date: 20171003
  Transmission Date: 20180321
  Serious: No
  Sender: FDA-Public Use
  Company Number: US-ROCHE-1921745

PATIENT
  Age: 9 Year
  Sex: Male

DRUGS (1)
  1. CATHFLO ACTIVASE [Suspect]
     Active Substance: ALTEPLASE
     Indication: PRODUCT USED FOR UNKNOWN INDICATION
     Dosage: NO
     Route: 042

REACTIONS (3)
  - Medication error [Unknown]
  - Wrong technique in product usage process [Unknown]
  - No adverse event [Unknown]
